FAERS Safety Report 13624708 (Version 2)
Quarter: 2018Q3

REPORT INFORMATION
  Report Type: Spontaneous
  Country: US (occurrence: US)
  Receive Date: 20170608
  Receipt Date: 20180910
  Transmission Date: 20181010
  Serious: No
  Sender: FDA-Public Use
  Company Number: US-PFIZER INC-2017126897

PATIENT
  Age: 60 Year
  Sex: Female
  Weight: 52.15 kg

DRUGS (4)
  1. EFFEXOR XR [Suspect]
     Active Substance: VENLAFAXINE HYDROCHLORIDE
     Indication: ANXIETY
     Dosage: UNK
  2. EFFEXOR XR [Suspect]
     Active Substance: VENLAFAXINE HYDROCHLORIDE
     Dosage: 150 MG, 1X/DAY
     Route: 048
  3. CHLORTHALIDONE. [Concomitant]
     Active Substance: CHLORTHALIDONE
     Indication: EAR DISORDER
     Dosage: 25 MG, 1X/DAY
  4. CRESTOR [Concomitant]
     Active Substance: ROSUVASTATIN CALCIUM
     Indication: BLOOD CHOLESTEROL INCREASED
     Dosage: 5 MG, 1X/DAY

REACTIONS (5)
  - Headache [Recovering/Resolving]
  - Lethargy [Recovering/Resolving]
  - Feeling abnormal [Unknown]
  - Drug dose omission [Recovering/Resolving]
  - Abnormal dreams [Unknown]

NARRATIVE: CASE EVENT DATE: 2018
